FAERS Safety Report 15304672 (Version 3)
Quarter: 2019Q1

REPORT INFORMATION
  Report Type: Spontaneous
  Country: ES (occurrence: ES)
  Receive Date: 20180821
  Receipt Date: 20190109
  Transmission Date: 20190417
  Serious: Yes (Hospitalization)
  Sender: FDA-Public Use
  Company Number: ES-TEVA-2018-ES-944778

PATIENT
  Age: 81 Year
  Sex: Female

DRUGS (4)
  1. FENTANYL. [Suspect]
     Active Substance: FENTANYL
     Indication: BACK PAIN
     Dosage: 4800 MICROGRAM DAILY; TRASMUCOSAL 4-5 TIMER PER DAY
     Route: 050
  2. OXYCODONE [Concomitant]
     Active Substance: OXYCODONE
     Indication: PAIN
     Dosage: 240 MILLIGRAM DAILY;
  3. BUPRENORPHINE. [Suspect]
     Active Substance: BUPRENORPHINE
     Indication: BACK PAIN
     Route: 062
  4. MORPHINE [Concomitant]
     Active Substance: MORPHINE
     Indication: PAIN
     Dosage: 20 OR 30 MG EACH 4-6 HOURS / AS NEEDED

REACTIONS (3)
  - Poor quality sleep [Unknown]
  - Hyperaesthesia [Recovered/Resolved]
  - Product use in unapproved indication [Unknown]
